FAERS Safety Report 7397880-7 (Version None)
Quarter: 2011Q2

REPORT INFORMATION
  Report Type: 
  Country: None (occurrence: None)
  Receive Date: 20110406
  Receipt Date: 20110401
  Transmission Date: 20111010
  Serious: Yes (Other)
  Sender: FDA-Public Use
  Company Number: GB-NAPPMUNDI-GBR-2010-0006350

PATIENT
  Sex: Female

DRUGS (7)
  1. PAROXETINE HCL [Concomitant]
     Indication: DEPRESSION
     Dosage: 10 MG, DAILY
     Route: 048
     Dates: start: 20080917
  2. BUPRENORPHINE [Concomitant]
     Indication: POLYARTHRITIS
     Dosage: 200 MCG, PRN
     Route: 060
  3. LEVOTHYROXINE [Concomitant]
     Indication: HYPOTHYROIDISM
     Dosage: 75 MCG, DAILY
     Route: 048
     Dates: start: 20060328
  4. CALCICHEW-D3 FORTE [Concomitant]
     Indication: OSTEOPENIA
     Dosage: 1 DF, BID
     Route: 048
     Dates: start: 20090126
  5. OMEPRAZOLE [Concomitant]
     Indication: GASTRITIS
     Dosage: 20 MG, DAILY
     Route: 048
     Dates: start: 20090723
  6. BUTRANS [Suspect]
     Indication: POLYARTHRITIS
     Dosage: 10 MCG, Q1H
     Route: 062
     Dates: start: 20090827, end: 20100819
  7. BOTOX [Interacting]
     Indication: DYSTONIA
     Dosage: UNK
     Route: 042
     Dates: start: 20080601

REACTIONS (2)
  - DRUG INTERACTION [None]
  - DYSPHAGIA [None]
